FAERS Safety Report 5746695-1 (Version None)
Quarter: 2008Q2

REPORT INFORMATION
  Report Type: 
  Country: None (occurrence: None)
  Receive Date: 20080522
  Receipt Date: 20080521
  Transmission Date: 20081010
  Serious: Yes (Hospitalization)
  Sender: FDA-Public Use
  Company Number: US-BRISTOL-MYERS SQUIBB COMPANY-14199392

PATIENT
  Age: 59 Year
  Sex: Female

DRUGS (1)
  1. METFORMIN HCL [Suspect]
     Dates: end: 20080501

REACTIONS (2)
  - CARDIAC FAILURE CONGESTIVE [None]
  - HYPOGLYCAEMIA [None]
